FAERS Safety Report 11333443 (Version 1)
Quarter: 2015Q3

REPORT INFORMATION
  Report Type: Spontaneous
  Country: US (occurrence: US)
  Receive Date: 20150803
  Receipt Date: 20150803
  Transmission Date: 20151125
  Serious: No
  Sender: FDA-Public Use
  Company Number: US-ELI_LILLY_AND_COMPANY-US200802005282

PATIENT
  Age: 21 Year
  Sex: Male

DRUGS (2)
  1. ZYPREXA ZYDIS [Suspect]
     Active Substance: OLANZAPINE
     Dosage: 5 MG, EACH MORNING
     Dates: end: 20080220
  2. ZYPREXA ZYDIS [Suspect]
     Active Substance: OLANZAPINE
     Dosage: 10 MG, EACH EVENING
     Dates: end: 20080220

REACTIONS (3)
  - Confusional state [Recovered/Resolved]
  - Speech disorder [Recovered/Resolved]
  - Peripheral swelling [Recovering/Resolving]
